FAERS Safety Report 10254661 (Version 2)
Quarter: 2014Q2

REPORT INFORMATION
  Report Type: Spontaneous
  Country: IT (occurrence: IT)
  Receive Date: 20140624
  Receipt Date: 20140630
  Transmission Date: 20141212
  Serious: Yes (Life-Threatening, Hospitalization)
  Sender: FDA-Public Use
  Company Number: IT-ASTRAZENECA-2014SE45131

PATIENT
  Age: 14091 Day
  Sex: Female

DRUGS (6)
  1. SEROQUEL [Suspect]
     Indication: INTENTIONAL SELF-INJURY
     Route: 048
     Dates: start: 20140506, end: 20140506
  2. SEROQUEL [Suspect]
     Indication: INTENTIONAL SELF-INJURY
     Route: 048
     Dates: start: 20140513
  3. DEPAKIN CHRONO [Suspect]
     Indication: INTENTIONAL SELF-INJURY
     Route: 048
     Dates: start: 20140506, end: 20140506
  4. CARBOLITHIUM [Suspect]
     Indication: INTENTIONAL SELF-INJURY
     Route: 048
     Dates: start: 20140506, end: 20140506
  5. TELOFEN [Suspect]
     Indication: INTENTIONAL SELF-INJURY
     Dosage: 4 G/100ML, 20 ML DAILY
     Route: 048
     Dates: start: 20140506, end: 20140506
  6. DALMADORM [Suspect]
     Indication: INTENTIONAL SELF-INJURY
     Route: 048
     Dates: start: 20140506, end: 20140506

REACTIONS (4)
  - Overdose [Recovered/Resolved]
  - Suicide attempt [Recovered/Resolved]
  - Drug abuse [Recovered/Resolved]
  - Sopor [Recovered/Resolved]
